FAERS Safety Report 11196887 (Version 1)
Quarter: 2015Q2

REPORT INFORMATION
  Report Type: Report from Study
  Country: DK (occurrence: DK)
  Receive Date: 20150617
  Receipt Date: 20150617
  Transmission Date: 20150821
  Serious: Yes (Other)
  Sender: FDA-Public Use
  Company Number: DK-NOVOPROD-453064

PATIENT
  Age: 34 Year
  Sex: Female
  Weight: 81 kg

DRUGS (2)
  1. RECOMBINANT FACTOR XIII HUMAN [Suspect]
     Active Substance: FACTOR XIII CONCENTRATE (HUMAN)
     Indication: PROPHYLAXIS
     Dosage: UNK (ONCE A MONTHLY DOSE)
     Route: 065
     Dates: start: 20130517, end: 20150507
  2. RECOMBINANT FACTOR XIII HUMAN [Suspect]
     Active Substance: FACTOR XIII CONCENTRATE (HUMAN)
     Indication: FACTOR XIII DEFICIENCY

REACTIONS (1)
  - Chest discomfort [Not Recovered/Not Resolved]

NARRATIVE: CASE EVENT DATE: 20150409
